FAERS Safety Report 5079121-9 (Version None)
Quarter: 2006Q3

REPORT INFORMATION
  Report Type: 
  Country: None (occurrence: None)
  Receive Date: 20060720
  Receipt Date: 20051210
  Transmission Date: 20061208
  Serious: Yes (Hospitalization)
  Sender: FDA-Public Use
  Company Number: 2005114675

PATIENT
  Sex: Female
  Weight: 86.1834 kg

DRUGS (13)
  1. CELEBREX [Suspect]
     Indication: ARTHRITIS
     Dosage: 200 MG (200 MG, 1 IN 1 D), ORAL
     Route: 048
  2. CELEBREX [Suspect]
     Indication: EXOSTOSIS
     Dosage: 200 MG (200 MG, 1 IN 1 D), ORAL
     Route: 048
  3. CELEBREX [Suspect]
     Indication: OSTEOPOROSIS
     Dosage: 200 MG (200 MG, 1 IN 1 D), ORAL
     Route: 048
  4. CELEBREX [Suspect]
     Indication: PAIN IN EXTREMITY
     Dosage: 200 MG (200 MG, 1 IN 1 D), ORAL
     Route: 048
  5. ZOCOR [Concomitant]
  6. CALCIUM (CALCIUM) [Concomitant]
  7. PROTONIX [Concomitant]
  8. FUROSEMIDE [Concomitant]
  9. DIOVAN HCT [Concomitant]
  10. CRESTOR [Concomitant]
  11. POTASSIUM CHLORIDE [Concomitant]
  12. ASPIRIN [Concomitant]
  13. FOSAMAX [Concomitant]

REACTIONS (4)
  - DIVERTICULUM [None]
  - EXOSTOSIS [None]
  - GASTROINTESTINAL HAEMORRHAGE [None]
  - MALAISE [None]
